FAERS Safety Report 8269292-5 (Version None)
Quarter: 2012Q2

REPORT INFORMATION
  Report Type: 
  Country: None (occurrence: None)
  Receive Date: 20120409
  Receipt Date: 20120404
  Transmission Date: 20120825
  Serious: Yes (Life-Threatening, Hospitalization)
  Sender: FDA-Public Use
  Company Number: JP-ABBOTT-12P-087-0917371-00

PATIENT
  Sex: Male
  Weight: 72 kg

DRUGS (14)
  1. TRANEXAMIC ACID [Concomitant]
     Indication: PRODUCT USED FOR UNKNOWN INDICATION
     Route: 048
     Dates: start: 20120314, end: 20120315
  2. METOCLOPRAMIDE [Concomitant]
     Indication: PRODUCT USED FOR UNKNOWN INDICATION
     Route: 048
     Dates: start: 20120315, end: 20120315
  3. MONTELUKAST SODIUM [Concomitant]
     Indication: PRODUCT USED FOR UNKNOWN INDICATION
     Route: 048
     Dates: start: 20120314, end: 20120315
  4. CLARITHROMYCIN [Suspect]
     Indication: PYREXIA
     Route: 048
     Dates: start: 20120312, end: 20120316
  5. FLAVINE ADENINE DINUCLEOTIDE [Concomitant]
     Indication: PRODUCT USED FOR UNKNOWN INDICATION
     Route: 042
     Dates: start: 20120314, end: 20120314
  6. IRSOGLADINE MALEATE [Concomitant]
     Indication: PRODUCT USED FOR UNKNOWN INDICATION
     Route: 048
     Dates: start: 20120314, end: 20120315
  7. CEFODIZIME DISODIUM [Concomitant]
     Indication: PRODUCT USED FOR UNKNOWN INDICATION
     Route: 042
     Dates: start: 20120314, end: 20120314
  8. CEFAZOLIN SODIUM [Concomitant]
     Indication: PRODUCT USED FOR UNKNOWN INDICATION
     Route: 042
     Dates: start: 20120315, end: 20120315
  9. EXTRACT FROM HEMOLYSED BLOOD OF YOUNG CATTLE [Concomitant]
     Indication: PRODUCT USED FOR UNKNOWN INDICATION
     Route: 042
     Dates: start: 20120315, end: 20120315
  10. SULPYRINE HYDRATE [Concomitant]
     Indication: PRODUCT USED FOR UNKNOWN INDICATION
     Route: 030
     Dates: start: 20120315, end: 20120315
  11. CLARITHROMYCIN [Suspect]
     Indication: LYMPHADENOPATHY
  12. FURSULTIAMINE [Concomitant]
     Indication: PRODUCT USED FOR UNKNOWN INDICATION
     Route: 042
     Dates: start: 20120314, end: 20120314
  13. ZANTAC [Suspect]
     Indication: PRODUCT USED FOR UNKNOWN INDICATION
     Route: 048
     Dates: start: 20120315, end: 20120315
  14. ACETAMINOPHEN [Concomitant]
     Indication: PRODUCT USED FOR UNKNOWN INDICATION
     Route: 048
     Dates: start: 20120314, end: 20120315

REACTIONS (3)
  - INFECTION [None]
  - LIVER DISORDER [None]
  - RHABDOMYOLYSIS [None]
